FAERS Safety Report 4406539-7 (Version None)
Quarter: 2004Q3

REPORT INFORMATION
  Report Type: 
  Country: None (occurrence: None)
  Receive Date: 20040723
  Receipt Date: 20040712
  Transmission Date: 20050211
  Serious: Yes (Other)
  Sender: FDA-Public Use
  Company Number: US-ROCHE-374127

PATIENT
  Age: 67 Year
  Sex: Female

DRUGS (4)
  1. XELODA [Suspect]
     Route: 048
  2. PROTONIX [Concomitant]
  3. PANCREAS LIPASE [Concomitant]
  4. LANTUS [Concomitant]

REACTIONS (1)
  - HYPOGLYCAEMIA [None]
